FAERS Safety Report 18072617 (Version 1)
Quarter: 2020Q3

REPORT INFORMATION
  Report Type: Spontaneous
  Country: US (occurrence: US)
  Receive Date: 20200727
  Receipt Date: 20200727
  Transmission Date: 20201103
  Serious: No
  Sender: FDA-Public Use
  Company Number: US-ACCORD-151351

PATIENT
  Age: 59 Year
  Sex: Female

DRUGS (5)
  1. FISH OIL [Concomitant]
     Active Substance: FISH OIL
  2. TIZANIDINE. [Concomitant]
     Active Substance: TIZANIDINE
  3. FLEXERIL [Concomitant]
     Active Substance: CYCLOBENZAPRINE HYDROCHLORIDE
     Dosage: 1 TO 2 AT NIGHT
  4. LETROZOLE ACCORD [Suspect]
     Active Substance: LETROZOLE
     Indication: HER2 POSITIVE BREAST CANCER
     Dosage: ONCE IN THE MORNING
     Route: 048
     Dates: start: 20190712
  5. CLONAZEPAM. [Concomitant]
     Active Substance: CLONAZEPAM

REACTIONS (6)
  - Arthralgia [Not Recovered/Not Resolved]
  - Drug intolerance [Unknown]
  - Wrong technique in product usage process [Unknown]
  - Walking disability [Unknown]
  - Insomnia [Not Recovered/Not Resolved]
  - Gastrooesophageal reflux disease [Not Recovered/Not Resolved]
